FAERS Safety Report 9575232 (Version 1)
Quarter: 2013Q4

REPORT INFORMATION
  Report Type: Spontaneous
  Country: US (occurrence: US)
  Receive Date: 20131001
  Receipt Date: 20131001
  Transmission Date: 20140711
  Serious: Yes (Hospitalization)
  Sender: FDA-Public Use
  Company Number: US-GLAXOSMITHKLINE-A1043378A

PATIENT
  Sex: Female

DRUGS (1)
  1. IMITREX [Suspect]
     Indication: MIGRAINE
     Dosage: 25MG UNKNOWN
     Route: 065
     Dates: start: 20101111

REACTIONS (2)
  - Hospitalisation [Unknown]
  - Gastrointestinal disorder [Unknown]
